FAERS Safety Report 18932850 (Version 6)
Quarter: 2021Q2

REPORT INFORMATION
  Report Type: Spontaneous
  Country: US (occurrence: US)
  Receive Date: 20210224
  Receipt Date: 20210602
  Transmission Date: 20210717
  Serious: Yes (Other)
  Sender: FDA-Public Use
  Company Number: US-GLAXOSMITHKLINE-US2021AMR050942

PATIENT
  Age: 59 Year
  Sex: Female

DRUGS (4)
  1. ZEJULA [Suspect]
     Active Substance: NIRAPARIB
     Dosage: 100 MG, QD
     Route: 048
  2. ZEJULA [Suspect]
     Active Substance: NIRAPARIB
     Indication: FALLOPIAN TUBE CANCER
     Dosage: 200 MG, QD
     Dates: start: 202101
  3. ZEJULA [Suspect]
     Active Substance: NIRAPARIB
     Indication: ENDOMETRIAL CANCER
     Dosage: 200 MG, QD
     Dates: start: 20210127
  4. ZEJULA [Suspect]
     Active Substance: NIRAPARIB
     Dosage: 100 MG, QD

REACTIONS (8)
  - Constipation [Unknown]
  - Deafness [Unknown]
  - Headache [Not Recovered/Not Resolved]
  - Laboratory test abnormal [Unknown]
  - Product use in unapproved indication [Unknown]
  - Asthenia [Unknown]
  - Nausea [Not Recovered/Not Resolved]
  - Adverse drug reaction [Unknown]

NARRATIVE: CASE EVENT DATE: 202104
